FAERS Safety Report 4457396-4 (Version None)
Quarter: 2004Q3

REPORT INFORMATION
  Report Type: 
  Country: None (occurrence: None)
  Receive Date: 20040922
  Receipt Date: 20040902
  Transmission Date: 20050211
  Serious: Yes (Hospitalization, Other)
  Sender: FDA-Public Use
  Company Number: USA040977315

PATIENT
  Age: 54 Year
  Sex: Male
  Weight: 150 kg

DRUGS (2)
  1. HUMULIN R [Suspect]
     Indication: DIABETES MELLITUS
     Dates: start: 20000101, end: 20020101
  2. HUMULIN 70/30 [Suspect]
     Indication: DIABETES MELLITUS
     Dosage: 90 U DAY
     Dates: start: 20020101

REACTIONS (7)
  - CHILLS [None]
  - FATIGUE [None]
  - HYPERHIDROSIS [None]
  - PHARMACEUTICAL PRODUCT COMPLAINT [None]
  - SENSORY LOSS [None]
  - TOE AMPUTATION [None]
  - WEIGHT INCREASED [None]
